FAERS Safety Report 12412803 (Version 1)
Quarter: 2016Q2

REPORT INFORMATION
  Report Type: Spontaneous
  Country: US (occurrence: US)
  Receive Date: 20160527
  Receipt Date: 20160527
  Transmission Date: 20160815
  Serious: No
  Sender: FDA-Public Use
  Company Number: US-PFIZER INC-2016249174

PATIENT
  Sex: Female

DRUGS (3)
  1. DRISTAN SINUS [Suspect]
     Active Substance: IBUPROFEN\PSEUDOEPHEDRINE HYDROCHLORIDE
     Indication: PARANASAL SINUS HYPERSECRETION
     Dosage: UNK
  2. DRISTAN SINUS [Suspect]
     Active Substance: IBUPROFEN\PSEUDOEPHEDRINE HYDROCHLORIDE
     Indication: THROAT IRRITATION
  3. DRISTAN SINUS [Suspect]
     Active Substance: IBUPROFEN\PSEUDOEPHEDRINE HYDROCHLORIDE
     Indication: EAR PRURITUS

REACTIONS (2)
  - Malaise [Unknown]
  - Drug ineffective [Unknown]
